FAERS Safety Report 25615953 (Version 3)
Quarter: 2025Q3

REPORT INFORMATION
  Report Type: Spontaneous
  Country: JP (occurrence: JP)
  Receive Date: 20250729
  Receipt Date: 20250818
  Transmission Date: 20251020
  Serious: Yes (Congenital Anomaly, Other)
  Sender: NOVARTIS
  Company Number: JP-002147023-NVSJ2025JP007772

PATIENT
  Age: 8 Decade
  Sex: Male

DRUGS (1)
  1. TASIGNA [Suspect]
     Active Substance: NILOTINIB
     Indication: Chronic myeloid leukaemia
     Route: 048

REACTIONS (2)
  - Prostate cancer [Unknown]
  - Second primary malignancy [Unknown]
